FAERS Safety Report 17009272 (Version 1)
Quarter: 2019Q4

REPORT INFORMATION
  Report Type: Spontaneous
  Country: DZ (occurrence: DZ)
  Receive Date: 20191108
  Receipt Date: 20191108
  Transmission Date: 20200122
  Serious: Yes (Other)
  Sender: FDA-Public Use
  Company Number: DZ-GLAXOSMITHKLINE-DZ2019EME199927

PATIENT

DRUGS (2)
  1. NASACORT [Concomitant]
     Active Substance: TRIAMCINOLONE ACETONIDE
     Indication: RHINITIS ALLERGIC
     Dosage: 1 PUFF(S), QD
     Route: 055
     Dates: start: 201803, end: 201908
  2. SERETIDE [Suspect]
     Active Substance: FLUTICASONE PROPIONATE\SALMETEROL XINAFOATE
     Indication: ASTHMA
     Dosage: 2 PUFF(S), QD
     Route: 055
     Dates: start: 201810, end: 201908

REACTIONS (2)
  - Visual acuity reduced [Unknown]
  - Chorioretinitis [Recovered/Resolved]

NARRATIVE: CASE EVENT DATE: 20190813
